FAERS Safety Report 5683834-5 (Version None)
Quarter: 2008Q1

REPORT INFORMATION
  Report Type: 
  Country: None (occurrence: None)
  Receive Date: 20080328
  Receipt Date: 20080317
  Transmission Date: 20080703
  Serious: Yes (Hospitalization)
  Sender: FDA-Public Use
  Company Number: JP-NOVOPROD-273440

PATIENT
  Age: 67 Year
  Sex: Male

DRUGS (6)
  1. NOVORAPID 30 MIX CHU FLEXPEN [Suspect]
     Indication: TYPE 2 DIABETES MELLITUS
     Dates: start: 20080306, end: 20080312
  2. NOVOLIN N [Suspect]
     Indication: TYPE 2 DIABETES MELLITUS
     Dates: start: 20080225, end: 20080306
  3. GASMOTIN [Concomitant]
     Route: 048
     Dates: start: 20080225, end: 20080306
  4. NOVORAPID CHU [Concomitant]
     Route: 058
     Dates: start: 20080225, end: 20080306
  5. EUGLUCON [Concomitant]
     Route: 048
     Dates: end: 20080225
  6. DAONIL [Concomitant]
     Route: 048
     Dates: end: 20080225

REACTIONS (2)
  - HEPATIC FUNCTION ABNORMAL [None]
  - STOMACH DISCOMFORT [None]
